FAERS Safety Report 7716360-X (Version None)
Quarter: 2011Q3

REPORT INFORMATION
  Report Type: 
  Country: None (occurrence: None)
  Receive Date: 20110812
  Receipt Date: 20110511
  Transmission Date: 20111222
  Serious: Yes (Other)
  Sender: FDA-Public Use
  Company Number: MEDI-0012436

PATIENT
  Age: 15 Month
  Sex: Male

DRUGS (3)
  1. SYNAGIS [Suspect]
     Dates: start: 20101130, end: 20110110
  2. SYNAGIS [Suspect]
  3. SYNAGIS [Suspect]

REACTIONS (1)
  - THROMBOCYTOPENIA [None]
